APPROVED DRUG PRODUCT: WINLEVI
Active Ingredient: CLASCOTERONE
Strength: 1%
Dosage Form/Route: CREAM;TOPICAL
Application: N213433 | Product #001
Applicant: SUN PHARMACEUTICAL INDUSTRIES LTD
Approved: Aug 26, 2020 | RLD: Yes | RS: Yes | Type: RX

PATENTS:
Patent 12337002 | Expires: Jul 24, 2028
Patent 11207332 | Expires: Nov 20, 2028
Patent 10159682 | Expires: Aug 14, 2028
Patent 8143240 | Expires: Jan 12, 2027
Patent 9486458 | Expires: Jul 24, 2028
Patent 9433628 | Expires: Feb 28, 2029
Patent 11938141 | Expires: Jul 24, 2028
Patent 8785427 | Expires: Jul 25, 2030